FAERS Safety Report 18027442 (Version 1)
Quarter: 2020Q3

REPORT INFORMATION
  Report Type: Spontaneous
  Country: FR (occurrence: FR)
  Receive Date: 20200715
  Receipt Date: 20200715
  Transmission Date: 20201103
  Serious: Yes (Life-Threatening)
  Sender: FDA-Public Use
  Company Number: FR-TEVA-2020-FR-1799145

PATIENT
  Age: 83 Year
  Sex: Male
  Weight: 70 kg

DRUGS (9)
  1. SIMVASTATINE [Suspect]
     Active Substance: SIMVASTATIN
     Indication: DYSLIPIDAEMIA
     Dosage: 1 DOSAGE FORM
     Route: 048
  2. PREVISCAN [FLUINDIONE] [Suspect]
     Active Substance: FLUINDIONE
     Indication: ATRIAL FIBRILLATION
     Dosage: 1 DOSAGEFORM
     Route: 048
     Dates: end: 20200515
  3. DAFALGAN [Concomitant]
     Active Substance: ACETAMINOPHEN
  4. UVEDOSE [Concomitant]
     Active Substance: CHOLECALCIFEROL
  5. FUROSEMIDE. [Concomitant]
     Active Substance: FUROSEMIDE
  6. TRIATEC [Concomitant]
  7. PANTOPRAZOLE [Concomitant]
     Active Substance: PANTOPRAZOLE
  8. ALDACTONE [Concomitant]
     Active Substance: SPIRONOLACTONE
  9. HEMIGOXINE NATIVELLE 0,125 MG, COMPRIM? [Concomitant]
     Active Substance: DIGOXIN

REACTIONS (3)
  - Subdural haematoma [Recovered/Resolved with Sequelae]
  - Coma [Recovered/Resolved]
  - Intracranial pressure increased [Recovered/Resolved]

NARRATIVE: CASE EVENT DATE: 20200515
